FAERS Safety Report 9393290 (Version 6)
Quarter: 2014Q4

REPORT INFORMATION
  Report Type: Spontaneous
  Country: US (occurrence: US)
  Receive Date: 20130710
  Receipt Date: 20141203
  Transmission Date: 20150529
  Serious: Yes (Hospitalization, Other)
  Sender: FDA-Public Use
  Company Number: US-MERCK-1307USA003576

PATIENT
  Sex: Female
  Weight: 58.5 kg

DRUGS (6)
  1. VITAMINS (UNSPECIFIED) [Concomitant]
     Active Substance: VITAMINS
     Dosage: UNK, QD
     Dates: start: 1970
  2. ALENDRONATE SODIUM. [Suspect]
     Active Substance: ALENDRONATE SODIUM
     Indication: OSTEOPOROSIS
     Dosage: UNK
     Dates: start: 1998, end: 2012
  3. FOSAMAX [Suspect]
     Active Substance: ALENDRONATE SODIUM
     Indication: OSTEOPOROSIS
     Dosage: 10 MG, UNK
     Route: 048
     Dates: start: 19981125, end: 20001114
  4. FOSAMAX [Suspect]
     Active Substance: ALENDRONATE SODIUM
     Indication: OSTEOPENIA
     Dosage: 70 MG, Q5D
     Route: 048
     Dates: start: 20001212
  5. FOSAMAX [Suspect]
     Active Substance: ALENDRONATE SODIUM
     Dosage: 70 MG, QW
     Route: 048
     Dates: start: 20070912
  6. ALENDRONATE SODIUM. [Suspect]
     Active Substance: ALENDRONATE SODIUM
     Indication: OSTEOPENIA

REACTIONS (43)
  - Wheezing [Unknown]
  - Iron deficiency anaemia [Unknown]
  - Osteoarthritis [Unknown]
  - Endodontic procedure [Unknown]
  - Insomnia [Unknown]
  - Chondroplasty [Unknown]
  - Low turnover osteopathy [Unknown]
  - Foot fracture [Unknown]
  - Fall [Unknown]
  - Spinal pain [Unknown]
  - Inappropriate schedule of drug administration [Unknown]
  - Post herpetic neuralgia [Unknown]
  - Stress [Unknown]
  - Mental disorder [Unknown]
  - Tonsillectomy [Unknown]
  - Headache [Unknown]
  - Haemorrhagic anaemia [Recovered/Resolved]
  - Depression [Unknown]
  - Migraine [Unknown]
  - Adverse event [Unknown]
  - Spinal fusion surgery [Unknown]
  - Fracture nonunion [Unknown]
  - Hypertension [Unknown]
  - Panic attack [Unknown]
  - Irritable bowel syndrome [Unknown]
  - Arthropathy [Unknown]
  - Folliculitis [Unknown]
  - Gastrooesophageal reflux disease [Unknown]
  - Intramedullary rod insertion [Unknown]
  - Inappropriate schedule of drug administration [Unknown]
  - Vulvovaginal dryness [Unknown]
  - Pain [Unknown]
  - Staphylococcal infection [Unknown]
  - Impaired healing [Unknown]
  - Arthralgia [Unknown]
  - Femur fracture [Recovering/Resolving]
  - Scoliosis [Unknown]
  - Anxiety [Unknown]
  - Injury [Unknown]
  - Neck pain [Unknown]
  - Oestrogen deficiency [Unknown]
  - Hypertriglyceridaemia [Unknown]
  - Meniscus operation [Unknown]

NARRATIVE: CASE EVENT DATE: 1998
